FAERS Safety Report 19111713 (Version 1)
Quarter: 2021Q2

REPORT INFORMATION
  Report Type: Spontaneous
  Country: US (occurrence: US)
  Receive Date: 20210409
  Receipt Date: 20210409
  Transmission Date: 20210717
  Serious: Yes (Hospitalization)
  Sender: FDA-Public Use
  Company Number: None

PATIENT
  Age: 55 Year
  Sex: Male
  Weight: 71 kg

DRUGS (12)
  1. DEXAMETHASONE. [Suspect]
     Active Substance: DEXAMETHASONE
     Dates: end: 20190127
  2. HYDROCORTISONE. [Suspect]
     Active Substance: HYDROCORTISONE
     Dates: end: 20190327
  3. RITUXIMAB (MOAB C2B8 ANTI CD20, CHIMERIC) [Suspect]
     Active Substance: RITUXIMAB
     Dates: end: 20190329
  4. CYTARABINE. [Suspect]
     Active Substance: CYTARABINE
     Dosage: ?          OTHER DOSE:75 UNIT;?
     Dates: end: 20190329
  5. CYCLOPHOSPHAMIDE. [Suspect]
     Active Substance: CYCLOPHOSPHAMIDE
     Dates: end: 20190218
  6. ONCASPAR [Suspect]
     Active Substance: PEGASPARGASE
     Dates: end: 20180821
  7. METHOTREXATE. [Suspect]
     Active Substance: METHOTREXATE
     Dates: end: 20190326
  8. DAUNORUBICIN [Suspect]
     Active Substance: DAUNORUBICIN
     Dates: end: 20180730
  9. ETOPOSIDE (VP?16) [Suspect]
     Active Substance: ETOPOSIDE
     Dosage: ?          OTHER DOSE:100 UNIT;?
     Dates: end: 20190329
  10. PREDNISONE. [Suspect]
     Active Substance: PREDNISONE
     Dates: end: 20190724
  11. VINCRISTINE [Suspect]
     Active Substance: VINCRISTINE
     Dates: end: 20190211
  12. MERCAPTOPURINE. [Suspect]
     Active Substance: MERCAPTOPURINE
     Dates: end: 20190303

REACTIONS (6)
  - Headache [None]
  - Cough [None]
  - Sepsis [None]
  - Throat irritation [None]
  - Flushing [None]
  - Febrile neutropenia [None]

NARRATIVE: CASE EVENT DATE: 20190405
